FAERS Safety Report 9325204 (Version 2)
Quarter: 2013Q2

REPORT INFORMATION
  Report Type: Report from Study
  Country: US (occurrence: US)
  Receive Date: 20130604
  Receipt Date: 20130628
  Transmission Date: 20140414
  Serious: Yes (Death)
  Sender: FDA-Public Use
  Company Number: US-ROCHE-1231870

PATIENT
  Age: 50 Year
  Sex: Female

DRUGS (5)
  1. AVASTIN [Suspect]
     Indication: NON-SMALL CELL LUNG CANCER
     Route: 065
     Dates: start: 20120502, end: 20130219
  2. ZOMETA [Concomitant]
  3. ZANTAC [Concomitant]
  4. PARAPLATIN [Concomitant]
  5. TAXOL [Concomitant]

REACTIONS (1)
  - Death [Fatal]
